FAERS Safety Report 11780181 (Version 1)
Quarter: 2015Q4

REPORT INFORMATION
  Report Type: Spontaneous
  Country: US (occurrence: US)
  Receive Date: 20151126
  Receipt Date: 20151126
  Transmission Date: 20160305
  Serious: No
  Sender: FDA-Public Use
  Company Number: US-JNJFOC-20150926330

PATIENT
  Age: 87 Year
  Sex: Male
  Weight: 81.65 kg

DRUGS (2)
  1. TYLENOL REGULAR STRENGTH [Suspect]
     Active Substance: ACETAMINOPHEN
     Indication: FATIGUE
     Dosage: ONE TABLET 2X QD
     Route: 048
  2. TYLENOL REGULAR STRENGTH [Suspect]
     Active Substance: ACETAMINOPHEN
     Indication: PAIN
     Dosage: ONE TABLET 2X QD
     Route: 048

REACTIONS (2)
  - Drug ineffective [Unknown]
  - Product use issue [Unknown]
